FAERS Safety Report 14421303 (Version 1)
Quarter: 2018Q1

REPORT INFORMATION
  Report Type: Spontaneous
  Country: US (occurrence: US)
  Receive Date: 20180122
  Receipt Date: 20180122
  Transmission Date: 20180509
  Serious: Yes (Other)
  Sender: FDA-Public Use
  Company Number: US-BIOGEN-2017BI00495242

PATIENT
  Age: 1 Year
  Sex: Female

DRUGS (2)
  1. SPINRAZA [Suspect]
     Active Substance: NUSINERSEN
     Route: 065
  2. SPINRAZA [Suspect]
     Active Substance: NUSINERSEN
     Indication: SPINAL MUSCULAR ATROPHY
     Dosage: FIRST 3 DOSES EVERY 14 DAYS; 4TH DOSE ONCE AFTER 30 DAYS. MAINTENANCE DOSES: ONCE EVERY 4 MONTHS.
     Route: 037
     Dates: start: 20170202

REACTIONS (3)
  - Antiphospholipid antibodies positive [Unknown]
  - Impaired healing [Not Recovered/Not Resolved]
  - Epidermal necrosis [Unknown]

NARRATIVE: CASE EVENT DATE: 20171101
